FAERS Safety Report 8373160-8 (Version None)
Quarter: 2012Q2

REPORT INFORMATION
  Report Type: 
  Country: None (occurrence: None)
  Receive Date: 20120521
  Receipt Date: 20120510
  Transmission Date: 20120825
  Serious: Yes (Hospitalization)
  Sender: FDA-Public Use
  Company Number: US-SANOFI-AVENTIS-2011SA081333

PATIENT
  Age: 71 Year
  Sex: Female
  Weight: 65.45 kg

DRUGS (7)
  1. CARBOPLATIN [Suspect]
     Indication: OVARIAN EPITHELIAL CANCER
     Dosage: AUC 6 ON DAY1
     Route: 033
     Dates: start: 20110502
  2. DOCETAXEL [Suspect]
     Route: 065
     Dates: start: 20110801
  3. PACLITAXEL [Suspect]
     Indication: OVARIAN EPITHELIAL CANCER
     Dosage: 80MG/M2 OVER 1 HOUR ON DAY 1, 8 AND 15
     Route: 042
     Dates: start: 20110502
  4. BEVACIZUMAB [Suspect]
     Indication: OVARIAN EPITHELIAL CANCER
     Dosage: DOSE-15MG/KG, 30-90 MIN ON DAY 1
     Route: 042
     Dates: start: 20110502
  5. BEVACIZUMAB [Suspect]
     Dosage: DOSE-15MG/KG, 30-90 MIN ON DAY 1
     Route: 042
     Dates: start: 20110801
  6. CARBOPLATIN [Suspect]
     Dosage: DOSE: 5 AUC
     Route: 033
     Dates: start: 20110801
  7. PACLITAXEL [Suspect]
     Route: 042
     Dates: start: 20110801

REACTIONS (8)
  - HYPOMAGNESAEMIA [None]
  - NAUSEA [None]
  - URINARY TRACT INFECTION [None]
  - WHITE BLOOD CELL COUNT DECREASED [None]
  - NEUTROPHIL COUNT DECREASED [None]
  - BLOOD CREATININE INCREASED [None]
  - DYSPNOEA [None]
  - HYPERKALAEMIA [None]
